FAERS Safety Report 10252694 (Version 1)
Quarter: 2014Q2

REPORT INFORMATION
  Report Type: Spontaneous
  Country: TR (occurrence: TR)
  Receive Date: 20140623
  Receipt Date: 20140623
  Transmission Date: 20141212
  Serious: Yes (Hospitalization)
  Sender: FDA-Public Use
  Company Number: TR-ACTAVIS-2014-12991

PATIENT
  Sex: Female

DRUGS (2)
  1. OXALIPLATIN (UNKNOWN) [Suspect]
     Indication: COLON CANCER STAGE III
     Dosage: 240 MG, DAILY
     Route: 042
  2. OXALIPLATIN (UNKNOWN) [Suspect]
     Indication: COLORECTAL CANCER METASTATIC

REACTIONS (4)
  - Respiratory distress [Unknown]
  - Hypertension [Unknown]
  - Hyperhidrosis [Unknown]
  - Drug withdrawal syndrome [Unknown]
